FAERS Safety Report 18274120 (Version 1)
Quarter: 2020Q3

REPORT INFORMATION
  Report Type: Spontaneous
  Country: JP (occurrence: JP)
  Receive Date: 20200916
  Receipt Date: 20200916
  Transmission Date: 20201103
  Serious: Yes (Other)
  Sender: FDA-Public Use
  Company Number: JP-JNJFOC-20200914420

PATIENT
  Age: 79 Year
  Sex: Male

DRUGS (8)
  1. METILDIGOXIN [Concomitant]
     Active Substance: METILDIGOXIN
  2. BISOPROLOL [Concomitant]
     Active Substance: BISOPROLOL
     Indication: CARDIAC FAILURE
  3. TAMSULOSIN [Concomitant]
     Active Substance: TAMSULOSIN
  4. AZOSEMIDE [Concomitant]
     Active Substance: AZOSEMIDE
     Indication: CARDIAC FAILURE
  5. MIRABEGRON [Concomitant]
     Active Substance: MIRABEGRON
  6. ESOMEPRAZOLE. [Concomitant]
     Active Substance: ESOMEPRAZOLE MAGNESIUM
  7. TRICHLORMETHIAZIDE [Concomitant]
     Active Substance: TRICHLORMETHIAZIDE
     Indication: CARDIAC FAILURE
  8. XARELTO [Suspect]
     Active Substance: RIVAROXABAN
     Indication: CEREBROVASCULAR ACCIDENT PROPHYLAXIS
     Route: 048
     Dates: start: 20180301

REACTIONS (4)
  - Dyspnoea exertional [Unknown]
  - Cardiac failure [Unknown]
  - Atrial thrombosis [Unknown]
  - Cardiac amyloidosis [Unknown]

NARRATIVE: CASE EVENT DATE: 20191101
